FAERS Safety Report 6094478-8 (Version None)
Quarter: 2009Q1

REPORT INFORMATION
  Report Type: 
  Country: None (occurrence: None)
  Receive Date: 20090224
  Receipt Date: 20090206
  Transmission Date: 20090719
  Serious: Yes (Hospitalization)
  Sender: FDA-Public Use
  Company Number: 20090041 /

PATIENT
  Age: 39 Year
  Sex: Male

DRUGS (6)
  1. VENOFER [Suspect]
     Indication: IRON DEFICIENCY ANAEMIA
     Dosage: INTRAVENOUS DRIP
     Route: 041
     Dates: start: 20081103, end: 20081105
  2. ATRIXTRA (FONDAPARINUX) [Concomitant]
  3. FERROSTRANE (FERRIC SODIUM EDETATE) [Concomitant]
  4. PERFALGAN (PARACETAMOL) [Concomitant]
  5. TOPALGIC (TRAMADOL) [Concomitant]
  6. AUGMENTIN (AMOXICILLIN, CLAVULANIC ACID) [Concomitant]

REACTIONS (3)
  - ERYTHEMA [None]
  - INJECTION SITE PHLEBITIS [None]
  - VENOUS THROMBOSIS LIMB [None]
